FAERS Safety Report 24082063 (Version 1)
Quarter: 2024Q3

REPORT INFORMATION
  Report Type: Spontaneous
  Country: US (occurrence: US)
  Receive Date: 20240712
  Receipt Date: 20240712
  Transmission Date: 20241017
  Serious: Yes (Other)
  Sender: SINOTHERAPEUTICS
  Company Number: US-SNT-000399

PATIENT
  Sex: Female

DRUGS (1)
  1. MESALAMINE [Suspect]
     Active Substance: MESALAMINE
     Indication: Product used for unknown indication
     Dosage: MESALAMINE DELAYED RELEASE 1.2G
     Route: 065

REACTIONS (6)
  - Nervousness [Unknown]
  - Feeling abnormal [Unknown]
  - Frequent bowel movements [Unknown]
  - Colitis ulcerative [Unknown]
  - Product substitution issue [Unknown]
  - Therapeutic response decreased [Unknown]
